FAERS Safety Report 22337817 (Version 1)
Quarter: 2023Q2

REPORT INFORMATION
  Report Type: Spontaneous
  Country: RU (occurrence: RU)
  Receive Date: 20230518
  Receipt Date: 20230518
  Transmission Date: 20230722
  Serious: Yes (Other)
  Sender: FDA-Public Use
  Company Number: None

PATIENT
  Age: 1 Decade
  Sex: Male

DRUGS (12)
  1. CELECOXIB [Suspect]
     Active Substance: CELECOXIB
     Indication: Medulloblastoma
     Dosage: 100 MG, 2 TIMES PER DAY (AT A DOSE OF 100 MG TWICE A DAY)
     Route: 048
  2. CELECOXIB [Suspect]
     Active Substance: CELECOXIB
     Indication: Metastases to spine
  3. CELECOXIB [Suspect]
     Active Substance: CELECOXIB
     Indication: Brain cancer metastatic
  4. SIROLIMUS [Suspect]
     Active Substance: SIROLIMUS
     Indication: Metastases to spine
     Dosage: 2 MG/M2, ONCE PER DAY (INITIAL DOSE OF 2 MG/M2/DAY)
     Route: 048
  5. SIROLIMUS [Suspect]
     Active Substance: SIROLIMUS
     Indication: Medulloblastoma
  6. SIROLIMUS [Suspect]
     Active Substance: SIROLIMUS
     Indication: Brain cancer metastatic
  7. ETOPOSIDE [Suspect]
     Active Substance: ETOPOSIDE
     Indication: Medulloblastoma
     Dosage: 1050 MG/M2 (ALTERNATE CYCLES OF ETOPOSIDE 50 MG/M2/DAY FOR THE FIRST 3 WEEKS)
     Route: 048
  8. ETOPOSIDE [Suspect]
     Active Substance: ETOPOSIDE
     Indication: Brain cancer metastatic
  9. ETOPOSIDE [Suspect]
     Active Substance: ETOPOSIDE
     Indication: Metastases to spine
  10. CYCLOPHOSPHAMIDE [Suspect]
     Active Substance: CYCLOPHOSPHAMIDE
     Indication: Medulloblastoma
     Dosage: 52.5 MG/KG (2.5 MG/KG/DAY FROM THE 4TH TO THE 6TH WEEK OF EACH CYCLE)
     Route: 048
  11. CYCLOPHOSPHAMIDE [Suspect]
     Active Substance: CYCLOPHOSPHAMIDE
     Indication: Brain cancer metastatic
  12. CYCLOPHOSPHAMIDE [Suspect]
     Active Substance: CYCLOPHOSPHAMIDE
     Indication: Metastases to spine

REACTIONS (2)
  - Thrombocytopenia [Unknown]
  - Neutropenia [Unknown]
